FAERS Safety Report 13754563 (Version 3)
Quarter: 2019Q1

REPORT INFORMATION
  Report Type: Report from Study
  Country: DK (occurrence: DK)
  Receive Date: 20170714
  Receipt Date: 20190320
  Transmission Date: 20190417
  Serious: Yes (Other)
  Sender: FDA-Public Use
  Company Number: DK-ACCORD-053469

PATIENT
  Sex: Female

DRUGS (7)
  1. ETOPOSIDE. [Suspect]
     Active Substance: ETOPOSIDE
     Indication: GESTATIONAL TROPHOBLASTIC TUMOUR
     Dosage: DAY 1-5, ALSO RECEIVED 165 MG/M2 MILLIGRAM(S)/SQ. METER FROM 2010
     Route: 042
  2. BLEOMYCIN [Suspect]
     Active Substance: BLEOMYCIN SULFATE
     Indication: GESTATIONAL TROPHOBLASTIC TUMOUR
     Route: 042
  3. CISPLATIN. [Suspect]
     Active Substance: CISPLATIN
     Indication: GESTATIONAL TROPHOBLASTIC TUMOUR
     Dosage: DAY 1-5, ALSO RECEIVED 50 MG/M2 MILLIGRAM(S)/SQ. METER FROM 2010.
     Route: 042
  4. METHOTREXATE. [Suspect]
     Active Substance: METHOTREXATE
     Indication: GESTATIONAL TROPHOBLASTIC TUMOUR
     Dosage: EVERY 4 WEEKS (ALTERNATIVELY EVERY 3 WEEKS)
     Route: 048
  5. BLEOMYCIN [Suspect]
     Active Substance: BLEOMYCIN SULFATE
     Indication: GESTATIONAL TROPHOBLASTIC TUMOUR
     Dosage: DAY 2, 9, AND 16
     Route: 042
  6. DACTINOMYCIN [Concomitant]
     Active Substance: DACTINOMYCIN
     Dosage: SCHEDULE REPEATED EVERY 4 WEEKS (ALTERNATIVELY EVERY 3 WEEKS)
     Route: 042
  7. FOLINIC ACID [Concomitant]
     Active Substance: LEUCOVORIN
     Indication: DRUG TOXICITY PROPHYLAXIS
     Route: 048

REACTIONS (4)
  - Respiratory symptom [Unknown]
  - Anaemia [Unknown]
  - Drug resistance [Unknown]
  - Off label use [Unknown]
